FAERS Safety Report 21329995 (Version 2)
Quarter: 2024Q1

REPORT INFORMATION
  Report Type: Spontaneous
  Country: US (occurrence: US)
  Receive Date: 20220913
  Receipt Date: 20240225
  Transmission Date: 20240410
  Serious: Yes (Other)
  Sender: FDA-Public Use
  Company Number: US-ELI_LILLY_AND_COMPANY-US202209001931

PATIENT
  Age: 60 Year
  Sex: Female
  Weight: 49.9 kg

DRUGS (4)
  1. MOUNJARO [Suspect]
     Active Substance: TIRZEPATIDE
     Indication: Blood glucose decreased
     Dosage: UNK UNK, UNKNOWN
     Route: 065
     Dates: start: 20220816
  2. MOUNJARO [Suspect]
     Active Substance: TIRZEPATIDE
     Indication: Blood glucose decreased
     Dosage: UNK UNK, UNKNOWN
     Route: 065
     Dates: start: 20220816
  3. MOUNJARO [Suspect]
     Active Substance: TIRZEPATIDE
     Indication: Blood glucose decreased
     Dosage: UNK UNK, UNKNOWN
     Route: 065
     Dates: start: 20220816
  4. MOUNJARO [Suspect]
     Active Substance: TIRZEPATIDE
     Indication: Blood glucose decreased
     Dosage: UNK UNK, UNKNOWN
     Route: 065
     Dates: start: 20220816

REACTIONS (1)
  - Weight decreased [Unknown]
